FAERS Safety Report 6661736-5 (Version None)
Quarter: 2010Q1

REPORT INFORMATION
  Report Type: 
  Country: None (occurrence: None)
  Receive Date: 20100331
  Receipt Date: 20090520
  Transmission Date: 20100710
  Serious: Yes (Other)
  Sender: FDA-Public Use
  Company Number: US-BRISTOL-MYERS SQUIBB COMPANY-14632475

PATIENT
  Sex: Male

DRUGS (4)
  1. ERBITUX [Suspect]
     Dates: start: 20090501, end: 20090501
  2. BENADRYL [Concomitant]
     Indication: PREMEDICATION
  3. DECADRON [Concomitant]
     Indication: PREMEDICATION
  4. TYLENOL-500 [Concomitant]
     Indication: PREMEDICATION

REACTIONS (1)
  - ANAPHYLACTIC REACTION [None]
